FAERS Safety Report 21611372 (Version 1)
Quarter: 2022Q4

REPORT INFORMATION
  Report Type: Spontaneous
  Country: FR (occurrence: FR)
  Receive Date: 20221117
  Receipt Date: 20221117
  Transmission Date: 20230113
  Serious: Yes (Hospitalization)
  Sender: FDA-Public Use
  Company Number: None

PATIENT
  Age: 48 Year
  Sex: Male

DRUGS (3)
  1. LINEZOLID [Suspect]
     Active Substance: LINEZOLID
     Indication: Endocarditis
     Dosage: 1200 MILLIGRAM DAILY; 600MG PER 12 HOURS, DURATION : 4 DAYS
     Route: 065
     Dates: start: 20221011, end: 20221015
  2. LINEZOLID [Suspect]
     Active Substance: LINEZOLID
     Dosage: 1200 MILLIGRAM DAILY; 600MG PER 12 HOURS, DURATION : 25 DAYS
     Route: 065
     Dates: start: 20220908, end: 20221003
  3. SIVEXTRO [Suspect]
     Active Substance: TEDIZOLID PHOSPHATE
     Indication: Endocarditis
     Dosage: 200 MILLIGRAM DAILY;  FORM STRENGTH : 200 MG, DURATION : 5 DAYS
     Route: 065
     Dates: start: 20221006, end: 20221011

REACTIONS (3)
  - Eosinophilia [Recovering/Resolving]
  - Thrombocytopenia [Recovered/Resolved]
  - Neutropenia [Recovered/Resolved]

NARRATIVE: CASE EVENT DATE: 20221013
